FAERS Safety Report 5977418-9 (Version None)
Quarter: 2008Q4

REPORT INFORMATION
  Report Type: 
  Country: None (occurrence: None)
  Receive Date: 20081201
  Receipt Date: 20081201
  Transmission Date: 20090506
  Serious: Yes (Other)
  Sender: FDA-Public Use
  Company Number: None

PATIENT
  Age: 33 Year
  Sex: Female
  Weight: 54.4316 kg

DRUGS (1)
  1. LYRICA [Suspect]
     Indication: CONNECTIVE TISSUE DISORDER
     Dosage: 75 MG 2 TIMES PER DAY PO
     Route: 048
     Dates: start: 20080901, end: 20081028

REACTIONS (3)
  - APHASIA [None]
  - COMMUNICATION DISORDER [None]
  - DISTURBANCE IN ATTENTION [None]
